FAERS Safety Report 23342769 (Version 7)
Quarter: 2025Q3

REPORT INFORMATION
  Report Type: Report from Study
  Country: CA (occurrence: CA)
  Receive Date: 20231227
  Receipt Date: 20250711
  Transmission Date: 20251021
  Serious: Yes (Hospitalization, Other)
  Sender: CHIESI
  Company Number: CA-AMRYT PHARMACEUTICALS DAC-AEGR006714

PATIENT
  Age: 38 Year
  Sex: Male
  Weight: 76.3 kg

DRUGS (23)
  1. LOMITAPIDE [Suspect]
     Active Substance: LOMITAPIDE
     Indication: Type IIa hyperlipidaemia
     Route: 048
     Dates: start: 20231006, end: 20231212
  2. LOMITAPIDE [Suspect]
     Active Substance: LOMITAPIDE
     Dosage: 5 MILLIGRAM, QD
     Route: 048
     Dates: start: 20231006, end: 20231212
  3. LOMITAPIDE [Suspect]
     Active Substance: LOMITAPIDE
  4. LOMITAPIDE [Suspect]
     Active Substance: LOMITAPIDE
  5. LOMITAPIDE [Suspect]
     Active Substance: LOMITAPIDE
     Dosage: 10 MILLIGRAM, QD
     Route: 048
     Dates: start: 20231006, end: 20231212
  6. LOMITAPIDE [Suspect]
     Active Substance: LOMITAPIDE
     Dates: start: 20240110
  7. LOMITAPIDE [Suspect]
     Active Substance: LOMITAPIDE
     Dosage: 10 MILLIGRAM, QD
     Route: 048
     Dates: start: 20240112
  8. LOMITAPIDE [Suspect]
     Active Substance: LOMITAPIDE
     Dosage: 15 MILLIGRAM, QD
     Route: 048
     Dates: start: 20240510
  9. ATORVASTATIN [Concomitant]
     Active Substance: ATORVASTATIN
     Indication: Product used for unknown indication
     Dates: start: 201905
  10. ATORVASTATIN [Concomitant]
     Active Substance: ATORVASTATIN
  11. EZETIMIBE [Concomitant]
     Active Substance: EZETIMIBE
     Indication: Product used for unknown indication
     Dates: start: 200701
  12. EZETIMIBE [Concomitant]
     Active Substance: EZETIMIBE
  13. EVOLOCUMAB [Concomitant]
     Active Substance: EVOLOCUMAB
     Indication: Product used for unknown indication
     Dosage: 420 UNK, BIW
     Route: 058
     Dates: start: 20230317
  14. CLOZARIL [Concomitant]
     Active Substance: CLOZAPINE
     Indication: Product used for unknown indication
  15. CLOZARIL [Concomitant]
     Active Substance: CLOZAPINE
  16. CLOZARIL [Concomitant]
     Active Substance: CLOZAPINE
  17. ABILIFY [Concomitant]
     Active Substance: ARIPIPRAZOLE
     Indication: Product used for unknown indication
  18. LIPITOR [Concomitant]
     Active Substance: ATORVASTATIN CALCIUM
     Indication: Product used for unknown indication
  19. EZETIMIBE [Concomitant]
     Active Substance: EZETIMIBE
     Indication: Product used for unknown indication
  20. RANITIDINE [Concomitant]
     Active Substance: RANITIDINE
     Indication: Product used for unknown indication
     Dosage: 150 MILLIGRAM, QD
  21. Pms aripiprazole [Concomitant]
     Indication: Product used for unknown indication
  22. FISH OIL [Concomitant]
     Active Substance: FISH OIL
     Indication: Product used for unknown indication
  23. TOCOPHEROL [Concomitant]
     Active Substance: TOCOPHEROL
     Indication: Product used for unknown indication

REACTIONS (9)
  - Hospitalisation [Unknown]
  - Alanine aminotransferase increased [Recovered/Resolved]
  - Aspartate aminotransferase increased [Recovered/Resolved]
  - Low density lipoprotein increased [Unknown]
  - Dyspepsia [Unknown]
  - Nausea [Unknown]
  - White blood cell count decreased [Unknown]
  - Inappropriate schedule of product administration [Unknown]
  - Product dose omission issue [Unknown]

NARRATIVE: CASE EVENT DATE: 20231207
